FAERS Safety Report 19409089 (Version 5)
Quarter: 2022Q3

REPORT INFORMATION
  Report Type: Report from Study
  Country: JP (occurrence: JP)
  Receive Date: 20210613
  Receipt Date: 20220906
  Transmission Date: 20221027
  Serious: Yes (Life-Threatening, Hospitalization, Other)
  Sender: FDA-Public Use
  Company Number: JP-ONO-2021JP013816

PATIENT
  Age: 58 Year
  Sex: Male
  Weight: 102.5 kg

DRUGS (19)
  1. ETELCALCETIDE [Suspect]
     Active Substance: ETELCALCETIDE
     Indication: Hyperparathyroidism secondary
     Dosage: 5 MILLIGRAM, Q56H
     Route: 010
     Dates: start: 20190907, end: 20200310
  2. ETELCALCETIDE [Suspect]
     Active Substance: ETELCALCETIDE
     Dosage: 2.5 MILLIGRAM, Q56H
     Route: 010
     Dates: start: 20200319, end: 20200407
  3. ETELCALCETIDE [Suspect]
     Active Substance: ETELCALCETIDE
     Dosage: 2.5 MILLIGRAM, QWK
     Route: 010
     Dates: start: 20200409, end: 20200512
  4. ETELCALCETIDE [Suspect]
     Active Substance: ETELCALCETIDE
     Dosage: 2.5 MILLIGRAM, Q84H
     Route: 010
     Dates: start: 20200409, end: 20200512
  5. ETELCALCETIDE [Suspect]
     Active Substance: ETELCALCETIDE
     Dosage: 2.5 MILLIGRAM, QWK
     Route: 010
     Dates: start: 20200514
  6. ETELCALCETIDE [Suspect]
     Active Substance: ETELCALCETIDE
     Dosage: 5 MILLIGRAM, Q84H
     Route: 010
     Dates: start: 20200514
  7. IVABRADINE HYDROCHLORIDE [Suspect]
     Active Substance: IVABRADINE HYDROCHLORIDE
     Indication: Cardiac failure chronic
     Dosage: UNK
     Route: 048
  8. ROCALTROL [Concomitant]
     Active Substance: CALCITRIOL
     Dosage: 0.5 MICROGRAM, Q84H
     Route: 065
     Dates: start: 20190411, end: 20200310
  9. ROCALTROL [Concomitant]
     Active Substance: CALCITRIOL
     Dosage: 1.0 MICROGRAM, QW
     Route: 065
     Dates: start: 20190413, end: 20200307
  10. ROCALTROL [Concomitant]
     Active Substance: CALCITRIOL
     Dosage: 1.0 MICROGRAM, Q84H
     Route: 065
     Dates: start: 20200312
  11. ROCALTROL [Concomitant]
     Active Substance: CALCITRIOL
     Dosage: 0.5 MICROGRAM, QWK
     Route: 065
     Dates: start: 20200317
  12. BIXALOMER [Concomitant]
     Active Substance: BIXALOMER
     Dosage: 4500 MILLIGRAM, QD
     Route: 065
     Dates: end: 20190906
  13. BIXALOMER [Concomitant]
     Active Substance: BIXALOMER
     Dosage: 6000 MILLIGRAM, QD
     Route: 065
     Dates: start: 20190907, end: 20190920
  14. BIXALOMER [Concomitant]
     Active Substance: BIXALOMER
     Dosage: 7500 MILLIGRAM, QD
     Route: 065
     Dates: start: 20190921
  15. CALTAN [Concomitant]
     Active Substance: CALCIUM CARBONATE
     Dosage: 2000 MILLIGRAM, QD
     Route: 048
     Dates: end: 20190920
  16. CALTAN [Concomitant]
     Active Substance: CALCIUM CARBONATE
     Dosage: 3000 MG, EVERYDAY
     Route: 048
     Dates: start: 20190921, end: 20200410
  17. CALTAN [Concomitant]
     Active Substance: CALCIUM CARBONATE
     Dosage: 1500 MILLIGRAM, QD
     Route: 048
     Dates: start: 20200411
  18. FOSRENOL [Concomitant]
     Active Substance: LANTHANUM CARBONATE
     Dosage: 2250 MILLIGRAM, QD
     Route: 048
  19. FOSRENOL [Concomitant]
     Active Substance: LANTHANUM CARBONATE
     Dosage: 1250 MILLIGRAM, QD
     Dates: start: 20200411

REACTIONS (3)
  - Cardiac failure congestive [Recovering/Resolving]
  - Cellulitis [Recovering/Resolving]
  - Cellulitis [Recovering/Resolving]

NARRATIVE: CASE EVENT DATE: 20210402
